FAERS Safety Report 13454685 (Version 1)
Quarter: 2017Q2

REPORT INFORMATION
  Report Type: Spontaneous
  Country: US (occurrence: US)
  Receive Date: 20170418
  Receipt Date: 20170418
  Transmission Date: 20170830
  Serious: Yes (Hospitalization)
  Sender: FDA-Public Use
  Company Number: None

PATIENT
  Age: 82 Year
  Sex: Male

DRUGS (1)
  1. INVANZ [Suspect]
     Active Substance: ERTAPENEM SODIUM
     Indication: OSTEOMYELITIS
     Route: 042
     Dates: start: 20170223, end: 20170302

REACTIONS (5)
  - Agitation [None]
  - Disorientation [None]
  - Confusional state [None]
  - Mental status changes [None]
  - Decreased appetite [None]

NARRATIVE: CASE EVENT DATE: 20170302
